FAERS Safety Report 18747705 (Version 1)
Quarter: 2021Q1

REPORT INFORMATION
  Report Type: Spontaneous
  Country: US (occurrence: US)
  Receive Date: 20210115
  Receipt Date: 20210115
  Transmission Date: 20210419
  Serious: Yes (Other)
  Sender: FDA-Public Use
  Company Number: US-ASTRAZENECA-2021A004342

PATIENT
  Age: 26738 Day
  Sex: Female
  Weight: 118.4 kg

DRUGS (3)
  1. BYDUREON BCISE [Suspect]
     Active Substance: EXENATIDE
     Indication: TYPE 2 DIABETES MELLITUS
     Route: 058
     Dates: start: 20200514
  2. BYETTA [Suspect]
     Active Substance: EXENATIDE
     Indication: TYPE 2 DIABETES MELLITUS
     Route: 065
  3. ASPIRIN. [Concomitant]
     Active Substance: ASPIRIN
     Indication: THROMBOSIS
     Route: 048

REACTIONS (15)
  - Bursitis [Unknown]
  - Injection site mass [Unknown]
  - Injection site haemorrhage [Unknown]
  - Nausea [Unknown]
  - Wrong technique in device usage process [Unknown]
  - Device leakage [Unknown]
  - Blood glucose abnormal [Unknown]
  - Headache [Not Recovered/Not Resolved]
  - Abdominal discomfort [Unknown]
  - Product dose omission issue [Unknown]
  - Weight decreased [Unknown]
  - Stress [Unknown]
  - Arthritis [Unknown]
  - Rotator cuff syndrome [Unknown]
  - Osteoarthritis [Unknown]

NARRATIVE: CASE EVENT DATE: 20201231
